FAERS Safety Report 7644765-4 (Version None)
Quarter: 2011Q3

REPORT INFORMATION
  Report Type: 
  Country: None (occurrence: None)
  Receive Date: 20110729
  Receipt Date: 20110721
  Transmission Date: 20111222
  Serious: Yes (Hospitalization)
  Sender: FDA-Public Use
  Company Number: JP-MILLENNIUM PHARMACEUTICALS, INC.-2011-03160

PATIENT

DRUGS (2)
  1. VELCADE [Suspect]
     Indication: MULTIPLE MYELOMA
     Dosage: UNK
     Route: 042
     Dates: start: 20110117, end: 20110715
  2. DEXAMETHASONE [Suspect]
     Indication: MULTIPLE MYELOMA
     Dosage: UNK
     Route: 048
     Dates: start: 20110117, end: 20110715

REACTIONS (2)
  - UPPER RESPIRATORY TRACT INFLAMMATION [None]
  - COLITIS [None]
